FAERS Safety Report 5631746-5 (Version None)
Quarter: 2008Q1

REPORT INFORMATION
  Report Type: 
  Country: None (occurrence: None)
  Receive Date: 20080220
  Receipt Date: 20080208
  Transmission Date: 20080703
  Serious: Yes (Other)
  Sender: FDA-Public Use
  Company Number: HQWYE971117AUG05

PATIENT
  Sex: Female

DRUGS (2)
  1. PREMARIN [Suspect]
     Indication: HORMONE REPLACEMENT THERAPY
     Dosage: UNSPECIFIED DOSE REGIMEN
     Route: 048
     Dates: start: 19910101, end: 20010101
  2. ESTRATEST [Suspect]

REACTIONS (1)
  - BREAST CANCER METASTATIC [None]
